FAERS Safety Report 7326250-2 (Version None)
Quarter: 2011Q1

REPORT INFORMATION
  Report Type: 
  Country: None (occurrence: None)
  Receive Date: 20110302
  Receipt Date: 20101027
  Transmission Date: 20110831
  Serious: Yes (Other)
  Sender: FDA-Public Use
  Company Number: A0915888A

PATIENT
  Age: 8 Year
  Sex: Male

DRUGS (2)
  1. FLOVENT [Suspect]
     Dosage: 2PUFF TWICE PER DAY
     Route: 055
     Dates: start: 20101014
  2. ZEGERID [Suspect]
     Dosage: 20MG PER DAY
     Route: 065
     Dates: start: 20101014

REACTIONS (2)
  - AGGRESSION [None]
  - OVERDOSE [None]
